FAERS Safety Report 8493962 (Version 3)
Quarter: 2012Q4

REPORT INFORMATION
  Report Type: 
  Country: JP (occurrence: JP)
  Receive Date: 20120404
  Receipt Date: 20120918
  Transmission Date: 20130627
  Serious: Yes (Other)
  Sender: FDA-Public Use
  Company Number: JP-TEVA-328496USA

PATIENT
  Age: 54 Year
  Sex: Female

DRUGS (8)
  1. TREANDA [Suspect]
     Indication: B-CELL LYMPHOMA
     Dosage: UID/QD
     Route: 042
     Dates: start: 20110411
  2. RITUXIMAB [Suspect]
     Indication: B-CELL LYMPHOMA
     Route: 042
     Dates: start: 20110411
  3. ETIZOLAM [Concomitant]
  4. GABAPENTIN [Concomitant]
  5. SODIUM PICOSULFATE [Concomitant]
  6. FLUCONAZOLE [Concomitant]
  7. RABEPRAZOLE SODIUM [Concomitant]
  8. OXYCODONE HYDROCHLORIDE [Concomitant]

REACTIONS (3)
  - Hepatitis B [Recovered/Resolved]
  - Urinary tract infection [Recovered/Resolved]
  - Bone marrow failure [Recovered/Resolved]
